FAERS Safety Report 8583464-1 (Version None)
Quarter: 2012Q3

REPORT INFORMATION
  Report Type: 
  Country: None (occurrence: None)
  Receive Date: 20120809
  Receipt Date: 20120806
  Transmission Date: 20120928
  Serious: Yes (Other)
  Sender: FDA-Public Use
  Company Number: US-BAYER-2012-080385

PATIENT
  Age: 48 Year
  Sex: Female

DRUGS (2)
  1. MIRENA [Suspect]
     Indication: CONTRACEPTION
     Dosage: DAILY DOSE 20 ?G
     Route: 015
     Dates: start: 20120601, end: 20120806
  2. MIRENA [Suspect]
     Indication: MENORRHAGIA

REACTIONS (2)
  - VAGINAL HAEMORRHAGE [None]
  - DEVICE DISLOCATION [None]
